FAERS Safety Report 5757804-2 (Version None)
Quarter: 2008Q2

REPORT INFORMATION
  Report Type: 
  Country: None (occurrence: None)
  Receive Date: 20080529
  Receipt Date: 20080515
  Transmission Date: 20081010
  Serious: Yes (Death, Hospitalization)
  Sender: FDA-Public Use
  Company Number: US023574

PATIENT
  Age: 59 Year
  Sex: Female
  Weight: 59 kg

DRUGS (6)
  1. TRISENOX [Suspect]
     Indication: ACUTE PROMYELOCYTIC LEUKAEMIA
     Dosage: 9 MG DAILY 5 DAYS EVERY 7 DAYS FOR 35 DAYS INTRAVENOUS
     Route: 042
     Dates: start: 20080221
  2. ZOVIRAX /00587301/ [Concomitant]
  3. TAZOCILLINE [Concomitant]
  4. TARGOCID [Concomitant]
  5. IDARUBICIN HCL [Concomitant]
  6. CYTARABINE [Concomitant]

REACTIONS (38)
  - ABSCESS [None]
  - ALANINE AMINOTRANSFERASE INCREASED [None]
  - APLASIA [None]
  - ASPARTATE AMINOTRANSFERASE INCREASED [None]
  - BLOOD BILIRUBIN INCREASED [None]
  - BLOOD CHLORIDE DECREASED [None]
  - BLOOD POTASSIUM DECREASED [None]
  - BLOOD PRESSURE DIASTOLIC DECREASED [None]
  - BLOOD SODIUM DECREASED [None]
  - BRONCHOPULMONARY ASPERGILLOSIS [None]
  - CEREBROVASCULAR DISORDER [None]
  - CONFUSIONAL STATE [None]
  - DYSPNOEA [None]
  - FEBRILE BONE MARROW APLASIA [None]
  - FUNGAL INFECTION [None]
  - HAEMOGLOBIN DECREASED [None]
  - HEART RATE INCREASED [None]
  - HEPATIC LESION [None]
  - HEPATOSPLENOMEGALY [None]
  - HYPERTHERMIA [None]
  - INFLAMMATION [None]
  - INTERVERTEBRAL DISC DISORDER [None]
  - LABORATORY TEST ABNORMAL [None]
  - LUNG DISORDER [None]
  - MOUTH ULCERATION [None]
  - MUCOSAL INFLAMMATION [None]
  - NEUTROPENIA [None]
  - PLATELET COUNT DECREASED [None]
  - PLEURAL EFFUSION [None]
  - PROTHROMBIN TIME ABNORMAL [None]
  - PULSE ABSENT [None]
  - RENAL DISORDER [None]
  - RESPIRATORY DISORDER [None]
  - SEPSIS [None]
  - SEPTIC SHOCK [None]
  - SKIN LESION [None]
  - STAPHYLOCOCCAL BACTERAEMIA [None]
  - WHITE BLOOD CELL COUNT DECREASED [None]
